FAERS Safety Report 7352442-2 (Version None)
Quarter: 2011Q1

REPORT INFORMATION
  Report Type: 
  Country: None (occurrence: None)
  Receive Date: 20110301
  Receipt Date: 20100826
  Transmission Date: 20110831
  Serious: Yes (Other)
  Sender: FDA-Public Use
  Company Number: 313858

PATIENT
  Age: 86 Year
  Sex: Female
  Weight: 65.8 kg

DRUGS (7)
  1. NAMENDA [Concomitant]
  2. DIOVAN [Concomitant]
  3. CARDIZEM [Concomitant]
  4. VITAMIN B-12 [Concomitant]
  5. LIPITOR [Concomitant]
  6. PRANDIN [Suspect]
     Indication: TYPE 2 DIABETES MELLITUS
     Dosage: 0.5 MG, QD, ORAL
     Route: 048
     Dates: start: 20100701, end: 20100826
  7. ARICEPT /01318901/ (DONEPEZIL) [Concomitant]

REACTIONS (1)
  - BLOOD GLUCOSE INCREASED [None]
